FAERS Safety Report 5919901-8 (Version None)
Quarter: 2008Q3

REPORT INFORMATION
  Report Type: 
  Country: None (occurrence: None)
  Receive Date: 20080909
  Receipt Date: 20070911
  Transmission Date: 20090109
  Serious: Yes (Death)
  Sender: FDA-Public Use
  Company Number: 163-20785-07070591

PATIENT
  Age: 74 Year
  Sex: Male

DRUGS (2)
  1. THALOMID [Suspect]
     Indication: MULTIPLE MYELOMA
     Dosage: 150 MG, 1 IN 1 D, ORAL ; 50 MG, QD, ORAL
     Route: 048
     Dates: start: 20070515, end: 20070101
  2. THALOMID [Suspect]
     Indication: MULTIPLE MYELOMA
     Dosage: 150 MG, 1 IN 1 D, ORAL ; 50 MG, QD, ORAL
     Route: 048
     Dates: start: 20050215, end: 20070501

REACTIONS (2)
  - LEUKAEMIA PLASMACYTIC [None]
  - MULTIPLE MYELOMA [None]
